FAERS Safety Report 6085248-5 (Version None)
Quarter: 2009Q1

REPORT INFORMATION
  Report Type: 
  Country: None (occurrence: None)
  Receive Date: 20090220
  Receipt Date: 20090109
  Transmission Date: 20090719
  Serious: Yes (Death, Hospitalization, Other)
  Sender: FDA-Public Use
  Company Number: US-CELGENEUS-163-50794-09010414

PATIENT

DRUGS (7)
  1. VIDAZA [Suspect]
     Route: 058
  2. VIDAZA [Suspect]
     Indication: MYELODYSPLASTIC SYNDROME
  3. HYDROXYUREA [Suspect]
     Route: 048
  4. GEMTUZUMAB OZOGAMICIN [Suspect]
     Route: 050
  5. ACETAMINOPHEN [Concomitant]
     Indication: PREMEDICATION
     Route: 065
  6. DIPHENHYDRAMINE HCL [Concomitant]
     Indication: PREMEDICATION
     Route: 065
  7. CORTICOSTEROIDS [Concomitant]
     Indication: PREMEDICATION
     Route: 065

REACTIONS (14)
  - ANOREXIA [None]
  - CHILLS [None]
  - DIARRHOEA [None]
  - DYSPNOEA [None]
  - EPISTAXIS [None]
  - FATIGUE [None]
  - FEBRILE NEUTROPENIA [None]
  - HAEMATURIA [None]
  - INJECTION SITE ERYTHEMA [None]
  - INJECTION SITE PAIN [None]
  - MALAISE [None]
  - NAUSEA [None]
  - OEDEMA PERIPHERAL [None]
  - PNEUMONIA [None]
